FAERS Safety Report 10892328 (Version 1)
Quarter: 2015Q1

REPORT INFORMATION
  Report Type: Report from Study
  Country: DE (occurrence: DE)
  Receive Date: 20150306
  Receipt Date: 20150306
  Transmission Date: 20150721
  Serious: Yes (Hospitalization, Other)
  Sender: FDA-Public Use
  Company Number: DE-ASTELLAS-2014US005565

PATIENT
  Age: 72 Year
  Sex: Female

DRUGS (4)
  1. ERLOTINIB [Suspect]
     Active Substance: ERLOTINIB
     Indication: PANCREATIC CARCINOMA
     Route: 048
     Dates: start: 20121213, end: 20130606
  2. GEMCITABINE [Suspect]
     Active Substance: GEMCITABINE\GEMCITABINE HYDROCHLORIDE
     Indication: PANCREATIC CARCINOMA
     Route: 042
     Dates: start: 20121213, end: 20130523
  3. PANTOPRAZOLE [Concomitant]
     Active Substance: PANTOPRAZOLE SODIUM
     Indication: PROPHYLAXIS
     Route: 048
     Dates: start: 20121213
  4. NOVALGIN [Concomitant]
     Active Substance: METAMIZOLE SODIUM
     Indication: PAIN
     Dosage: UNK UNK, UNKNOWN FREQ.
     Route: 048
     Dates: start: 20120221

REACTIONS (4)
  - Device occlusion [Recovered/Resolved]
  - Cholangitis [Unknown]
  - Device occlusion [Unknown]
  - Bile duct stenosis [Recovered/Resolved]

NARRATIVE: CASE EVENT DATE: 20130208
